FAERS Safety Report 10661539 (Version 5)
Quarter: 2015Q2

REPORT INFORMATION
  Report Type: Report from Study
  Country: US (occurrence: US)
  Receive Date: 20141218
  Receipt Date: 20150622
  Transmission Date: 20150821
  Serious: Yes (Other)
  Sender: FDA-Public Use
  Company Number: PHEH2014US021618

PATIENT
  Sex: Female

DRUGS (7)
  1. ARMOUR THYROID [Concomitant]
     Active Substance: THYROID, PORCINE\THYROID, UNSPECIFIED
     Route: 065
  2. EXJADE [Suspect]
     Active Substance: DEFERASIROX
     Dosage: UNK MG, QD (1500 AND 1000 MG ALTERNATING)
     Route: 048
     Dates: start: 20130812
  3. TOVIAZ [Concomitant]
     Active Substance: FESOTERODINE FUMARATE
     Indication: PRODUCT USED FOR UNKNOWN INDICATION
     Route: 065
  4. AMLODIPINE [Concomitant]
     Active Substance: AMLODIPINE BESYLATE
     Indication: PRODUCT USED FOR UNKNOWN INDICATION
  5. DOXYCYCLIN//DOXYCYCLINE HYCLATE [Concomitant]
     Indication: PRODUCT USED FOR UNKNOWN INDICATION
     Route: 065
  6. EXJADE [Suspect]
     Active Substance: DEFERASIROX
     Indication: MYELODYSPLASTIC SYNDROME
     Dosage: MIX AND DRINK 3 TABLETS (1500 MG) ALTERNATING WITH 2 TABLETS (1000) MG, QD
     Route: 048
     Dates: start: 20130510
  7. CELECOXIB. [Concomitant]
     Active Substance: CELECOXIB
     Route: 065

REACTIONS (7)
  - Peripheral swelling [Unknown]
  - Oedema peripheral [Unknown]
  - Diarrhoea [Unknown]
  - Peripheral vascular disorder [Unknown]
  - Abdominal discomfort [Unknown]
  - Bladder disorder [Unknown]
  - Nausea [Unknown]
